FAERS Safety Report 11061109 (Version 1)
Quarter: 2015Q2

REPORT INFORMATION
  Report Type: Report from Study
  Country: US (occurrence: US)
  Receive Date: 20150424
  Receipt Date: 20150424
  Transmission Date: 20150821
  Serious: Yes (Other)
  Sender: FDA-Public Use
  Company Number: US-ROCHE-1567461

PATIENT
  Age: 45 Year
  Sex: Female

DRUGS (6)
  1. HERCEPTIN [Suspect]
     Active Substance: TRASTUZUMAB
     Indication: HER-2 POSITIVE BREAST CANCER
     Dosage: 1L DOSE
     Route: 065
  2. KADCYLA [Suspect]
     Active Substance: ADO-TRASTUZUMAB EMTANSINE
     Indication: HER-2 POSITIVE BREAST CANCER
     Dosage: 3L DOSE
     Route: 065
  3. PERJETA [Suspect]
     Active Substance: PERTUZUMAB
     Indication: HER-2 POSITIVE BREAST CANCER
     Dosage: 1L DOSE
     Route: 065
  4. XELODA [Suspect]
     Active Substance: CAPECITABINE
     Indication: HER-2 POSITIVE BREAST CANCER
     Route: 065
  5. TAXOTERE [Concomitant]
     Active Substance: DOCETAXEL
     Indication: HER-2 POSITIVE BREAST CANCER
  6. TYKERB [Concomitant]
     Active Substance: LAPATINIB DITOSYLATE
     Indication: HER-2 POSITIVE BREAST CANCER

REACTIONS (1)
  - Cardiotoxicity [Unknown]
